APPROVED DRUG PRODUCT: JANUMET XR
Active Ingredient: METFORMIN HYDROCHLORIDE; SITAGLIPTIN PHOSPHATE
Strength: 1GM;EQ 50MG BASE
Dosage Form/Route: TABLET, EXTENDED RELEASE;ORAL
Application: N202270 | Product #002
Applicant: MERCK SHARP AND DOHME LLC A SUB OF MERCK AND CO INC
Approved: Feb 2, 2012 | RLD: Yes | RS: No | Type: RX

PATENTS:
Patent 7326708 | Expires: Nov 24, 2026
Patent 7326708*PED | Expires: May 24, 2027